FAERS Safety Report 7102580-4 (Version None)
Quarter: 2010Q4

REPORT INFORMATION
  Report Type: 
  Country: None (occurrence: None)
  Receive Date: 20101115
  Receipt Date: 20101108
  Transmission Date: 20110411
  Serious: Yes (Hospitalization)
  Sender: FDA-Public Use
  Company Number: A0788263A

PATIENT
  Age: 67 Year
  Sex: Male
  Weight: 96.4 kg

DRUGS (14)
  1. AVANDIA [Suspect]
     Indication: DIABETES MELLITUS
     Dosage: 8MG PER DAY
     Route: 048
  2. AVANDAMET [Suspect]
     Indication: DIABETES MELLITUS
     Route: 048
  3. VERELAN [Concomitant]
  4. ZOCOR [Concomitant]
  5. ZANTAC [Concomitant]
  6. AVALIDE [Concomitant]
  7. ASPIRIN [Concomitant]
  8. GLUCOPHAGE [Concomitant]
  9. VITAMINS [Concomitant]
  10. ALLOPURINOL [Concomitant]
  11. GLYBURIDE [Concomitant]
  12. PACERONE [Concomitant]
  13. ATENOLOL [Concomitant]
  14. TRICOR [Concomitant]

REACTIONS (4)
  - ATRIAL FIBRILLATION [None]
  - CARDIAC FAILURE CONGESTIVE [None]
  - CORONARY ARTERY DISEASE [None]
  - MYOCARDIAL INFARCTION [None]
